FAERS Safety Report 16179136 (Version 1)
Quarter: 2019Q2

REPORT INFORMATION
  Report Type: Spontaneous
  Country: DE (occurrence: DE)
  Receive Date: 20190410
  Receipt Date: 20190410
  Transmission Date: 20190711
  Serious: Yes (Other)
  Sender: FDA-Public Use
  Company Number: DE-BRISTOL-MYERS SQUIBB COMPANY-BMS-2019-034203

PATIENT
  Age: 70 Year
  Sex: Female

DRUGS (2)
  1. ELIQUIS [Suspect]
     Active Substance: APIXABAN
     Indication: PRODUCT USED FOR UNKNOWN INDICATION
     Dosage: 5 MILLIGRAM, BID
     Route: 048
  2. WOBENZYM                           /02140101/ [Concomitant]
     Active Substance: BROMELAINS\CHYMOTRYPSIN\LIPASE\PANCRELIPASE\PANCRELIPASE AMYLASE\PAPAIN\RUTIN\TRYPSIN
     Indication: GASTROINTESTINAL DISORDER
     Route: 065

REACTIONS (4)
  - Failure to suspend medication [Unknown]
  - Gastrointestinal disorder [Unknown]
  - Gastrointestinal inflammation [Unknown]
  - Intestinal haemorrhage [Unknown]
